FAERS Safety Report 7312981-7 (Version None)
Quarter: 2011Q1

REPORT INFORMATION
  Report Type: 
  Country: None (occurrence: None)
  Receive Date: 20110224
  Receipt Date: 20110210
  Transmission Date: 20110831
  Serious: Yes (Other)
  Sender: FDA-Public Use
  Company Number: IN-MYLANLABS-2011S1003070

PATIENT
  Age: 4 Year
  Sex: Male
  Weight: 15 kg

DRUGS (1)
  1. ONDANSETRON [Suspect]
     Indication: VOMITING
     Dosage: 0.13 MG/KG
     Route: 042

REACTIONS (3)
  - CONVULSION [None]
  - HYPOGLYCAEMIA [None]
  - DYSTONIA [None]
